FAERS Safety Report 19503383 (Version 2)
Quarter: 2021Q3

REPORT INFORMATION
  Report Type: Spontaneous
  Country: US (occurrence: US)
  Receive Date: 20210708
  Receipt Date: 20210901
  Transmission Date: 20211014
  Serious: No
  Sender: FDA-Public Use
  Company Number: US-JNJFOC-20210652199

PATIENT
  Age: 45 Year
  Sex: Female

DRUGS (6)
  1. UPTRAVI [Concomitant]
     Active Substance: SELEXIPAG
     Indication: PULMONARY ARTERIAL HYPERTENSION
     Route: 065
     Dates: start: 2021
  2. UPTRAVI [Concomitant]
     Active Substance: SELEXIPAG
     Route: 065
     Dates: start: 202106
  3. IBUPROFEN. [Suspect]
     Active Substance: IBUPROFEN
     Indication: HEADACHE
     Route: 065
     Dates: start: 202106
  4. TYLENOL [Suspect]
     Active Substance: ACETAMINOPHEN
     Indication: HEADACHE
     Route: 065
     Dates: start: 202106
  5. UPTRAVI [Concomitant]
     Active Substance: SELEXIPAG
     Route: 065
     Dates: start: 2021
  6. UPTRAVI [Concomitant]
     Active Substance: SELEXIPAG
     Route: 065
     Dates: start: 202106

REACTIONS (1)
  - Drug ineffective [Unknown]

NARRATIVE: CASE EVENT DATE: 202106
